FAERS Safety Report 8402559-6 (Version None)
Quarter: 2012Q2

REPORT INFORMATION
  Report Type: 
  Country: None (occurrence: None)
  Receive Date: 20120601
  Receipt Date: 20120529
  Transmission Date: 20120825
  Serious: Yes (Death, Other)
  Sender: FDA-Public Use
  Company Number: CN-ROCHE-1073645

PATIENT

DRUGS (4)
  1. CELLCEPT [Suspect]
     Indication: IMMUNOSUPPRESSION
  2. GLUCOCORTICOID NOS [Suspect]
     Indication: IMMUNOSUPPRESSION
  3. TACROLIMUS [Suspect]
     Indication: IMMUNOSUPPRESSION
  4. CYCLOSPORINE [Suspect]
     Indication: IMMUNOSUPPRESSION

REACTIONS (3)
  - INFECTION IN AN IMMUNOCOMPROMISED HOST [None]
  - HEPATITIS B [None]
  - ACUTE HEPATIC FAILURE [None]
